FAERS Safety Report 20730209 (Version 2)
Quarter: 2022Q2

REPORT INFORMATION
  Report Type: Spontaneous
  Country: DE (occurrence: DE)
  Receive Date: 20220420
  Receipt Date: 20220428
  Transmission Date: 20220720
  Serious: Yes (Other)
  Sender: FDA-Public Use
  Company Number: DE-PFIZER INC-202200551949

PATIENT
  Sex: Male

DRUGS (1)
  1. METHOTREXATE SODIUM [Suspect]
     Active Substance: METHOTREXATE SODIUM
     Dosage: 1.5 DF, WEEKLY
     Dates: start: 2008

REACTIONS (3)
  - Penetrating aortic ulcer [Unknown]
  - Renal cyst [Unknown]
  - Wrong technique in product usage process [Unknown]
